FAERS Safety Report 25004417 (Version 1)
Quarter: 2025Q1

REPORT INFORMATION
  Report Type: Spontaneous
  Country: US (occurrence: None)
  Receive Date: 20250224
  Receipt Date: 20250224
  Transmission Date: 20250408
  Serious: Yes (Other)
  Sender: ACS DOBFAR
  Company Number: US-MLMSERVICE-20250211-PI406687-00053-1

PATIENT
  Age: 5 Decade
  Sex: Male

DRUGS (2)
  1. AMPICILLIN [Suspect]
     Active Substance: AMPICILLIN
  2. ROCEPHIN [Suspect]
     Active Substance: CEFTRIAXONE SODIUM

REACTIONS (1)
  - Tubulointerstitial nephritis [Unknown]
